FAERS Safety Report 6672847-2 (Version None)
Quarter: 2010Q2

REPORT INFORMATION
  Report Type: 
  Country: None (occurrence: None)
  Receive Date: 20100408
  Receipt Date: 20100329
  Transmission Date: 20101027
  Serious: Yes (Other)
  Sender: FDA-Public Use
  Company Number: PHHY2009CA03698

PATIENT
  Sex: Female

DRUGS (10)
  1. ACLASTA [Suspect]
     Indication: OSTEOPOROSIS
     Dosage: UNK
     Dates: start: 20090127
  2. ACLASTA [Suspect]
     Dosage: 5 MG PER 100 ML SINGLE DOSE
     Route: 042
     Dates: start: 20100111
  3. CALCIUM [Concomitant]
     Dosage: 500 MG OD
  4. ELAVIL [Concomitant]
     Dosage: 10 MG OD
  5. IMOVANE [Concomitant]
     Dosage: 5 MG, UNK
  6. NASONEX [Concomitant]
  7. ELOCON [Concomitant]
     Dosage: UNK
  8. FUCIDINE CAP [Concomitant]
  9. SARNA [Concomitant]
     Dosage: UNK
  10. SYNTHROID [Concomitant]
     Dosage: 0.75 MG, UNK

REACTIONS (6)
  - ASTHENIA [None]
  - DEAFNESS NEUROSENSORY [None]
  - FATIGUE [None]
  - HYPOACUSIS [None]
  - INJECTION SITE SWELLING [None]
  - PAIN IN JAW [None]
